FAERS Safety Report 9468627 (Version 1)
Quarter: 2013Q3

REPORT INFORMATION
  Report Type: Spontaneous
  Country: US (occurrence: None)
  Receive Date: 20130814
  Receipt Date: 20130814
  Transmission Date: 20140515
  Serious: Yes (Other)
  Sender: FDA-Public Use
  Company Number: FK201303222

PATIENT
  Sex: Female

DRUGS (3)
  1. PLACITAXEL (MANUFACTURER UNKNOWN) (PACLITAXEL) (PACLITAXEL) [Suspect]
     Indication: BREAST CANCER STAGE I
  2. CYTOXAN [Suspect]
     Indication: BREAST CANCER STAGE I
  3. ADRIAMYCIN [Suspect]
     Indication: BREAST CANCER STAGE I

REACTIONS (2)
  - Maternal exposure during pregnancy [None]
  - Uterine contractions during pregnancy [None]
